FAERS Safety Report 20510746 (Version 1)
Quarter: 2022Q1

REPORT INFORMATION
  Report Type: Report from Study
  Country: US (occurrence: US)
  Receive Date: 20220224
  Receipt Date: 20220224
  Transmission Date: 20220423
  Serious: Yes (Hospitalization)
  Sender: FDA-Public Use
  Company Number: US-HORIZON THERAPEUTICS-HZN-2022-000259

PATIENT

DRUGS (5)
  1. KRYSTEXXA [Suspect]
     Active Substance: PEGLOTICASE
     Indication: Product used for unknown indication
     Dosage: 8 MG, EVERY 2 WEEKS
     Route: 042
     Dates: start: 20211231
  2. KRYSTEXXA [Suspect]
     Active Substance: PEGLOTICASE
     Dosage: 2ND INFUSION AT 125ML/HR, EVERY 2 WEEKS
     Route: 042
     Dates: start: 20220128
  3. SOLU-MEDROL [Concomitant]
     Active Substance: METHYLPREDNISOLONE SODIUM SUCCINATE
     Indication: Premedication
     Dosage: 125 MG
     Route: 042
  4. DIPHENHYDRAMINE [Concomitant]
     Active Substance: DIPHENHYDRAMINE
     Indication: Premedication
     Dosage: 25 MG
     Route: 042
  5. COLCHICINE [Concomitant]
     Active Substance: COLCHICINE
     Indication: Product used for unknown indication
     Route: 048

REACTIONS (16)
  - Pain in extremity [Not Recovered/Not Resolved]
  - Cold sweat [Not Recovered/Not Resolved]
  - Dizziness [Recovering/Resolving]
  - Cyanosis [Not Recovered/Not Resolved]
  - Anxiety [Unknown]
  - Limb discomfort [Not Recovered/Not Resolved]
  - Hyperventilation [Unknown]
  - Abdominal pain [Recovering/Resolving]
  - Fatigue [Not Recovered/Not Resolved]
  - Dyspnoea [Not Recovered/Not Resolved]
  - Chest pain [Recovering/Resolving]
  - Arthralgia [Not Recovered/Not Resolved]
  - Gait inability [Not Recovered/Not Resolved]
  - Headache [Not Recovered/Not Resolved]
  - Insomnia [Not Recovered/Not Resolved]
  - Oedema peripheral [Not Recovered/Not Resolved]

NARRATIVE: CASE EVENT DATE: 20220128
